FAERS Safety Report 8711528 (Version 3)
Quarter: 2012Q4

REPORT INFORMATION
  Report Type: 
  Country: US (occurrence: US)
  Receive Date: 20120807
  Receipt Date: 20121017
  Transmission Date: 20130627
  Serious: Yes (Life-Threatening, Hospitalization, Disabling, Other)
  Sender: FDA-Public Use
  Company Number: US-GLAXOSMITHKLINE-A0987713A

PATIENT
  Age: 26 Year
  Sex: Female
  Weight: 137 kg

DRUGS (23)
  1. LAMICTAL [Suspect]
     Indication: PRODUCT USED FOR UNKNOWN INDICATION
     Dosage: 400MG At night
     Route: 048
     Dates: start: 2008, end: 20120728
  2. ABILIFY [Concomitant]
     Dosage: 10MG Per day
     Route: 048
     Dates: end: 20120729
  3. UNSPECIFIED MEDICATION [Concomitant]
  4. WELLBUTRIN [Concomitant]
     Dosage: 100MG Three times per day
     Route: 048
     Dates: end: 20120729
  5. LITHIUM [Concomitant]
     Dosage: 300MG Three times per day
     Route: 048
  6. ATIVAN [Concomitant]
     Dosage: .25MG At night
     Route: 048
  7. HALIDOL [Concomitant]
     Dosage: 5MG At night
     Route: 048
  8. CLONAZEPAM [Concomitant]
     Dosage: 1MG Three times per day
     Route: 048
     Dates: end: 20120729
  9. CASODEX [Concomitant]
  10. NORVASC [Concomitant]
  11. PLAVIX [Concomitant]
  12. METHYLPREDNISOLONE [Concomitant]
     Route: 048
  13. LASIX [Concomitant]
  14. HYDREA [Concomitant]
  15. LOPRESSOR [Concomitant]
  16. PROTONIX [Concomitant]
  17. TYLENOL [Concomitant]
  18. FENTANYL [Concomitant]
  19. XOPENEX [Concomitant]
  20. MAALOX [Concomitant]
  21. REGLAN [Concomitant]
  22. ZOFRAN [Concomitant]
  23. COMPAZINE [Concomitant]

REACTIONS (34)
  - Pneumonia [Not Recovered/Not Resolved]
  - White blood cell count increased [Unknown]
  - Hepatomegaly [Unknown]
  - Splenomegaly [Unknown]
  - Cardiomyopathy [Unknown]
  - Myositis [Unknown]
  - Eosinophil percentage increased [Unknown]
  - Haematemesis [Unknown]
  - Pyrexia [Unknown]
  - Myalgia [Unknown]
  - Mental status changes [Unknown]
  - Anaemia [Unknown]
  - Haemoglobin decreased [Unknown]
  - Nausea [Unknown]
  - Confusional state [Unknown]
  - Hypersensitivity [Unknown]
  - Blood albumin decreased [Unknown]
  - Blood alkaline phosphatase increased [Unknown]
  - Aspartate aminotransferase increased [Unknown]
  - Alanine aminotransferase increased [Unknown]
  - Blood bilirubin increased [Unknown]
  - Bilirubin conjugated increased [Unknown]
  - Blood lactate dehydrogenase increased [Unknown]
  - Neck pain [Unknown]
  - Arterial stenosis [Unknown]
  - Asthenia [Unknown]
  - Cardiac disorder [Unknown]
  - Nuclear magnetic resonance imaging brain abnormal [Unknown]
  - Bronchospasm [Unknown]
  - Face oedema [Unknown]
  - Laryngeal oedema [Unknown]
  - Hypotension [Unknown]
  - Proteinuria [Unknown]
  - Eosinophilia [Unknown]
